FAERS Safety Report 5967692-7 (Version None)
Quarter: 2008Q4

REPORT INFORMATION
  Report Type: 
  Country: None (occurrence: None)
  Receive Date: 20081126
  Receipt Date: 20081114
  Transmission Date: 20090506
  Serious: Yes (Other)
  Sender: FDA-Public Use
  Company Number: GB-RANBAXY-2008RR-19371

PATIENT
  Age: 24 Year
  Sex: Female
  Weight: 70 kg

DRUGS (1)
  1. CLARITHROMYCIN [Suspect]
     Indication: SINUSITIS

REACTIONS (3)
  - BLOOD CREATINE PHOSPHOKINASE INCREASED [None]
  - MYALGIA [None]
  - PAIN IN EXTREMITY [None]
